FAERS Safety Report 8118592-8 (Version None)
Quarter: 2012Q1

REPORT INFORMATION
  Report Type: 
  Country: None (occurrence: None)
  Receive Date: 20120207
  Receipt Date: 20120201
  Transmission Date: 20120608
  Serious: Yes (Hospitalization, Other)
  Sender: FDA-Public Use
  Company Number: US-AMGEN-USASP2011010111

PATIENT
  Age: 61 Year
  Sex: Female

DRUGS (3)
  1. ENBREL [Suspect]
     Indication: RHEUMATOID ARTHRITIS
     Dosage: 50 MG, QWK
     Dates: start: 20080514, end: 20101215
  2. ENBREL [Suspect]
     Indication: FIBROMYALGIA
     Dosage: UNK
  3. ENBREL [Suspect]
     Indication: OSTEOARTHRITIS

REACTIONS (17)
  - LARGE INTESTINAL HAEMORRHAGE [None]
  - ULCER [None]
  - DYSPEPSIA [None]
  - LOSS OF CONSCIOUSNESS [None]
  - CONVULSION [None]
  - PLATELET COUNT ABNORMAL [None]
  - FALL [None]
  - BOWEL MOVEMENT IRREGULARITY [None]
  - FREQUENT BOWEL MOVEMENTS [None]
  - TRANSIENT ISCHAEMIC ATTACK [None]
  - FLATULENCE [None]
  - ABDOMINAL PAIN [None]
  - RHEUMATOID ARTHRITIS [None]
  - MUSCLE SPASMS [None]
  - EATING DISORDER [None]
  - GASTRIC ULCER [None]
  - MALAISE [None]
